FAERS Safety Report 11079334 (Version 1)
Quarter: 2015Q2

REPORT INFORMATION
  Report Type: Spontaneous
  Country: US (occurrence: US)
  Receive Date: 20150430
  Receipt Date: 20150430
  Transmission Date: 20150821
  Serious: No
  Sender: FDA-Public Use
  Company Number: US-JNJFOC-20150410862

PATIENT
  Age: 46 Year
  Sex: Male
  Weight: 78.47 kg

DRUGS (1)
  1. INVEGA [Suspect]
     Active Substance: PALIPERIDONE
     Indication: SCHIZOAFFECTIVE DISORDER
     Route: 030
     Dates: start: 201410, end: 20150326

REACTIONS (6)
  - Musculoskeletal stiffness [Recovering/Resolving]
  - Vision blurred [Not Recovered/Not Resolved]
  - Drug intolerance [Unknown]
  - Dry mouth [Not Recovered/Not Resolved]
  - Skin discolouration [Unknown]
  - Wound [Unknown]

NARRATIVE: CASE EVENT DATE: 201410
